FAERS Safety Report 6036212-3 (Version None)
Quarter: 2009Q1

REPORT INFORMATION
  Report Type: 
  Country: None (occurrence: None)
  Receive Date: 20090113
  Receipt Date: 20090112
  Transmission Date: 20090719
  Serious: Yes (Death)
  Sender: FDA-Public Use
  Company Number: US-B.I. PHARMACEUTICALS,INC./RIDGEFIELD-2009-BP-00335BP

PATIENT
  Sex: Male

DRUGS (16)
  1. SPIRIVA [Suspect]
     Indication: DYSPNOEA
     Dosage: 18MCG
     Route: 055
     Dates: start: 20081001, end: 20081227
  2. XANAX [Concomitant]
  3. METOCLOPRAMIDE HYDROCHLORIDE [Concomitant]
     Indication: NAUSEA
     Dosage: 20MG
  4. NEXIUM [Concomitant]
     Indication: GASTROINTESTINAL DISORDER
     Dosage: 40MG
  5. VYTORIN [Concomitant]
     Dosage: 10MG
  6. CARTIA XT [Concomitant]
     Indication: CARDIAC DISORDER
     Dosage: 120MG
  7. METAZAPINE [Concomitant]
     Dosage: 30MG
  8. LEVOTHYROXINE SODIUM [Concomitant]
     Dosage: .088MG
  9. METOPROLOL TARTRATE [Concomitant]
     Indication: HEART RATE IRREGULAR
     Dosage: 50MG
  10. ENULOSE SYRUP [Concomitant]
  11. FLUTICASONE PROPIONATE [Concomitant]
  12. VENTOLIN [Concomitant]
  13. MEGESTROL ACETATE [Concomitant]
  14. MULTI-VITAMINS [Concomitant]
  15. STOOL SOFTENERS [Concomitant]
  16. ALEVE [Concomitant]

REACTIONS (1)
  - LUNG NEOPLASM MALIGNANT [None]
